FAERS Safety Report 4703406-6 (Version None)
Quarter: 2005Q2

REPORT INFORMATION
  Report Type: 
  Country: None (occurrence: None)
  Receive Date: 20050629
  Receipt Date: 20050621
  Transmission Date: 20051028
  Serious: Yes (Other)
  Sender: FDA-Public Use
  Company Number: ST-2005-008366

PATIENT
  Age: 75 Year
  Sex: Male

DRUGS (9)
  1. OLMETEC [Suspect]
     Indication: HYPERTENSION
     Dosage: 20 MG QD PO
     Route: 048
     Dates: start: 20041229, end: 20050105
  2. TANNALBIN [Concomitant]
  3. LAC B [Concomitant]
  4. CALCIUM LACTATE [Concomitant]
  5. NITRODERM [Concomitant]
  6. AMLODIN [Concomitant]
  7. GASTER [Concomitant]
  8. DIOVAN [Concomitant]
  9. ALFAROL [Concomitant]

REACTIONS (6)
  - ALANINE AMINOTRANSFERASE INCREASED [None]
  - ASPARTATE AMINOTRANSFERASE INCREASED [None]
  - DIALYSIS [None]
  - DRUG LEVEL INCREASED [None]
  - HEPATIC FUNCTION ABNORMAL [None]
  - RENAL FAILURE CHRONIC [None]
